FAERS Safety Report 6613989-7 (Version None)
Quarter: 2010Q2

REPORT INFORMATION
  Report Type: 
  Country: None (occurrence: None)
  Receive Date: 20100303
  Receipt Date: 20100303
  Transmission Date: 20101027
  Serious: Yes (Hospitalization, Other)
  Sender: FDA-Public Use
  Company Number: None

PATIENT
  Age: 33 Year
  Sex: Male
  Weight: 79 kg

DRUGS (4)
  1. FEIBA VH IMMUNO [Suspect]
     Indication: HAEMOPHILIA B WITHOUT INHIBITORS
     Dosage: ~6000 UNITS Q12H IV DRIP
     Route: 041
     Dates: start: 20100218, end: 20100223
  2. FEIBA VH IMMUNO [Suspect]
     Indication: HAEMORRHAGE
     Dosage: ~6000 UNITS Q12H IV DRIP
     Route: 041
     Dates: start: 20100218, end: 20100223
  3. FEIBA VH IMMUNO [Suspect]
  4. FEIBA VH IMMUNO [Suspect]

REACTIONS (3)
  - MUSCLE HAEMORRHAGE [None]
  - OEDEMA PERIPHERAL [None]
  - THROMBOSIS [None]
